FAERS Safety Report 21387620 (Version 2)
Quarter: 2022Q4

REPORT INFORMATION
  Report Type: Spontaneous
  Country: ES (occurrence: ES)
  Receive Date: 20220928
  Receipt Date: 20221024
  Transmission Date: 20230112
  Serious: Yes (Life-Threatening, Hospitalization, Other)
  Sender: FDA-Public Use
  Company Number: ES-STADA-252947

PATIENT
  Age: 77 Year
  Sex: Male

DRUGS (26)
  1. MORPHINE SULFATE [Suspect]
     Active Substance: MORPHINE SULFATE
     Indication: Post laminectomy syndrome
     Dosage: 4.9 MILLIGRAM, DAILY
     Route: 065
  2. MORPHINE SULFATE [Suspect]
     Active Substance: MORPHINE SULFATE
     Indication: Post laminectomy syndrome
     Dosage: 150 MILLIGRAM, Q8H
     Route: 065
  3. MORPHINE SULFATE [Suspect]
     Active Substance: MORPHINE SULFATE
     Indication: Post laminectomy syndrome
     Dosage: 25% OF THE EQUIVALENT DOSE OF INTRATHECAL MORPHINE
     Route: 065
  4. MORPHINE SULFATE [Suspect]
     Active Substance: MORPHINE SULFATE
     Dosage: 7997 MILLIGRAM, DAILY
     Route: 065
  5. MORPHINE SULFATE [Suspect]
     Active Substance: MORPHINE SULFATE
     Indication: Post laminectomy syndrome
     Dosage: 7997 MILLIGRAM, DAILY
     Route: 065
  6. MORPHINE SULFATE [Suspect]
     Active Substance: MORPHINE SULFATE
     Dosage: 25% OF THE EQUIVALENT DOSE OF INTRATHECAL MORPHINE, ON DEMAND
     Route: 065
  7. MORPHINE SULFATE [Suspect]
     Active Substance: MORPHINE SULFATE
     Indication: Post laminectomy syndrome
     Dosage: 50 PERCENT OF IM WAS REPLACED WITH 25 PERCENT OF EQUIVALENT DOSE IN CONTINOUS IV INFUSION BY  PCA PU
     Route: 065
  8. MORPHINE SULFATE [Suspect]
     Active Substance: MORPHINE SULFATE
     Indication: Analgesic therapy
  9. DEXMEDETOMIDINE [Suspect]
     Active Substance: DEXMEDETOMIDINE
     Indication: Confusional state
     Dosage: UNK
     Route: 065
  10. CEFTAZIDIME [Suspect]
     Active Substance: CEFTAZIDIME
     Indication: Device related infection
     Dosage: UNK
     Route: 065
  11. QUETIAPINE [Suspect]
     Active Substance: QUETIAPINE
     Indication: Confusional state
     Dosage: UNK
     Route: 065
  12. CLOXACILLIN [Suspect]
     Active Substance: CLOXACILLIN
     Indication: Device related infection
     Dosage: UNK
     Route: 065
  13. HALOPERIDOL [Suspect]
     Active Substance: HALOPERIDOL
     Indication: Confusional state
     Dosage: UNK
     Route: 065
  14. CLONIDINE [Suspect]
     Active Substance: CLONIDINE
     Indication: Confusional state
     Dosage: UNK
     Route: 065
  15. OLANZAPINE [Suspect]
     Active Substance: OLANZAPINE
     Indication: Confusional state
     Dosage: UNK
     Route: 065
  16. MORPHINE [Concomitant]
     Active Substance: MORPHINE
     Indication: Post laminectomy syndrome
     Dosage: DOSE DECREASED
  17. MORPHINE [Concomitant]
     Active Substance: MORPHINE
     Dosage: ORAL CONTROLLED-RELEASE MORPHINE (MST) WAS STARTED PROGRESSIVELY UNTIL 50% OF THE EQUIVALENT DOSE OF
  18. MORPHINE [Concomitant]
     Active Substance: MORPHINE
     Dosage: DESCENDING ORAL MORPHINE REGIMEN
  19. CLOXACILLIN [Concomitant]
     Active Substance: CLOXACILLIN
     Indication: Postoperative wound infection
     Dosage: UNK
  20. CEFTAZIDIME [Concomitant]
     Active Substance: CEFTAZIDIME
     Indication: Postoperative wound infection
     Dosage: UNK
  21. MORPHINE [Concomitant]
     Active Substance: MORPHINE
     Indication: Pain
     Dosage: MST STARTED IN ASCENDING DOSES, DOSE INCREASED
  22. MORPHINE [Concomitant]
     Active Substance: MORPHINE
     Dosage: 7.997 MILLIGRAM PER DAY THROUGH INTRATHECAL MORPHINE (MI) PUMP CARRIER
  23. MORPHINE [Concomitant]
     Active Substance: MORPHINE
     Dosage: 120 MG EVERY 8 HOURS
  24. MORPHINE [Concomitant]
     Active Substance: MORPHINE
     Dosage: 150 MG, T.I.D.
  25. MORPHINE [Concomitant]
     Active Substance: MORPHINE
     Dosage: INCREASED TO 50 PERCENT OF THE DOSE OF MI, PATIENT CONTROLLED ANALGESIA PUMP, INITIALLY, DOSE  OF IV
  26. MORPHINE [Concomitant]
     Active Substance: MORPHINE
     Dosage: 200 MG EVERY 8 HOURS

REACTIONS (12)
  - Haemodynamic instability [Recovered/Resolved]
  - Respiratory failure [Recovered/Resolved]
  - Toxicity to various agents [Recovering/Resolving]
  - Condition aggravated [Recovered/Resolved]
  - Condition aggravated [Recovered/Resolved]
  - Delirium [Recovering/Resolving]
  - Drug ineffective [Unknown]
  - Confusional state [Recovering/Resolving]
  - Somnolence [Recovering/Resolving]
  - Drug withdrawal syndrome [Recovering/Resolving]
  - Hypersomnia [Recovered/Resolved]
  - Product use in unapproved indication [Unknown]
